FAERS Safety Report 4789664-0 (Version None)
Quarter: 2005Q4

REPORT INFORMATION
  Report Type: 
  Country: None (occurrence: None)
  Receive Date: 20051004
  Receipt Date: 20050921
  Transmission Date: 20060501
  Serious: Yes (Hospitalization, Other)
  Sender: FDA-Public Use
  Company Number: US_990624427

PATIENT
  Age: 54 Year
  Sex: Male
  Weight: 100 kg

DRUGS (7)
  1. HUMALOG [Suspect]
     Indication: DIABETES MELLITUS
     Dosage: 5 U/3 DAY
     Dates: start: 19980622
  2. HUMULIN N [Suspect]
     Indication: DIABETES MELLITUS
     Dosage: 35 U/2 IN THE MORNING
     Dates: start: 19990622
  3. ILETIN-PORK NPH INSULIN (INSULIN, ANIMAL) [Suspect]
     Indication: DIABETES MELLITUS
     Dates: start: 19480101, end: 19900101
  4. TICLID [Concomitant]
  5. DILANTIN [Concomitant]
  6. UNIVASC [Concomitant]
  7. NOVOLIN N [Concomitant]

REACTIONS (15)
  - ASTHENIA [None]
  - BLOOD GLUCOSE INCREASED [None]
  - CEREBROVASCULAR ACCIDENT [None]
  - CONFUSIONAL STATE [None]
  - CONVULSION [None]
  - CORONARY ARTERY OCCLUSION [None]
  - DRUG INEFFECTIVE [None]
  - FALL [None]
  - IMPAIRED HEALING [None]
  - MOVEMENT DISORDER [None]
  - POST PROCEDURAL COMPLICATION [None]
  - SUBDURAL HAEMATOMA [None]
  - UPPER LIMB FRACTURE [None]
  - VISUAL FIELD DEFECT [None]
  - WEIGHT DECREASED [None]
